FAERS Safety Report 9338851 (Version 1)
Quarter: 2013Q2

REPORT INFORMATION
  Report Type: Spontaneous
  Country: US (occurrence: US)
  Receive Date: 20130610
  Receipt Date: 20130610
  Transmission Date: 20140414
  Serious: Yes (Other)
  Sender: FDA-Public Use
  Company Number: US-ELI_LILLY_AND_COMPANY-US201306000103

PATIENT
  Sex: Male

DRUGS (18)
  1. CYMBALTA [Suspect]
     Indication: PAIN IN EXTREMITY
     Dosage: 60 MG, QD
     Dates: start: 20130415
  2. PLAVIX [Concomitant]
     Dosage: 75 MG, UNK
  3. COLACE [Concomitant]
     Dosage: 100 MG, UNK
  4. FLOMAX [Concomitant]
     Dosage: 0.8 MG, UNK
  5. LEXAPRO [Concomitant]
     Dosage: 5 MG, QD
  6. FERROUS SULPHATE [Concomitant]
     Dosage: 5 G, UNK
  7. CARDIZEM                           /00489701/ [Concomitant]
     Dosage: 180 MG, QD
  8. ASA [Concomitant]
     Dosage: 81 MG, UNK
  9. NORVASC [Concomitant]
     Dosage: 5 MG, QD
  10. ACETAMINOPHEN [Concomitant]
     Dosage: 650 UNITS NOT GIVEN , BID
  11. SENOKOT S [Concomitant]
     Dosage: UNK, BID
  12. CALCIUM [Concomitant]
     Dosage: 600 MG, BID
  13. VITAMIN D [Concomitant]
     Dosage: 200 UNITS, BID
  14. SIMVASTATIN [Concomitant]
     Dosage: 20 MG, UNK
  15. TUMS [Concomitant]
     Dosage: 500 MG, PRN
  16. ARTIFICIAL TEARS [Concomitant]
     Dosage: UNK UNK, PRN
  17. MOM [Concomitant]
     Dosage: 300 MG, PRN
  18. DEBROX [Concomitant]
     Dosage: UNK, TID

REACTIONS (2)
  - Balance disorder [Not Recovered/Not Resolved]
  - Muscular weakness [Unknown]
